FAERS Safety Report 5020741-5 (Version None)
Quarter: 2006Q2

REPORT INFORMATION
  Report Type: 
  Country: None (occurrence: None)
  Receive Date: 20060601
  Receipt Date: 20060520
  Transmission Date: 20061013
  Serious: Yes (Other)
  Sender: FDA-Public Use
  Company Number: 14122

PATIENT
  Sex: Female

DRUGS (2)
  1. METHOTREXATE [Suspect]
     Indication: RHEUMATOID ARTHRITIS
  2. STEROIDS, UNSPECIFIED [Suspect]
     Indication: RHEUMATOID ARTHRITIS

REACTIONS (2)
  - CALCIPHYLAXIS [None]
  - SEPSIS [None]
